FAERS Safety Report 25531806 (Version 2)
Quarter: 2025Q3

REPORT INFORMATION
  Report Type: Report from Study
  Country: EU (occurrence: EU)
  Receive Date: 20250709
  Receipt Date: 20250711
  Transmission Date: 20251020
  Serious: Yes (Hospitalization, Other)
  Sender: ROCHE
  Company Number: EU-ROCHE-10000235829

PATIENT
  Age: 81 Year
  Sex: Male
  Weight: 64 kg

DRUGS (9)
  1. CROVALIMAB [Suspect]
     Active Substance: CROVALIMAB
     Indication: Paroxysmal nocturnal haemoglobinuria
     Route: 058
     Dates: start: 20170726, end: 20250220
  2. APIXABAN [Concomitant]
     Active Substance: APIXABAN
     Dosage: 2X5 MG
     Route: 048
  3. PANTOPRAZOLE [Concomitant]
     Active Substance: PANTOPRAZOLE
     Route: 048
  4. ALPRAZOLAM [Concomitant]
     Active Substance: ALPRAZOLAM
     Route: 048
  5. SOTALOL [Concomitant]
     Active Substance: SOTALOL
     Route: 048
  6. TELMISARTAN [Concomitant]
     Active Substance: TELMISARTAN
     Dosage: 80/12.5
     Route: 048
  7. ATORVASTATIN [Concomitant]
     Active Substance: ATORVASTATIN
     Route: 048
  8. GELMOR [Concomitant]
     Dosage: 0.5/0.4 MG
     Route: 048
  9. MESALAMINE [Concomitant]
     Active Substance: MESALAMINE

REACTIONS (2)
  - Ischaemic stroke [Recovered/Resolved]
  - Haemolysis [Unknown]

NARRATIVE: CASE EVENT DATE: 20250228
